FAERS Safety Report 4711877-4 (Version None)
Quarter: 2005Q3

REPORT INFORMATION
  Report Type: 
  Country: None (occurrence: None)
  Receive Date: 20050708
  Receipt Date: 20050405
  Transmission Date: 20060218
  Serious: Yes (Other)
  Sender: FDA-Public Use
  Company Number: US-2005-004906

PATIENT
  Age: 16 Year
  Sex: Female

DRUGS (1)
  1. ULTRAVIST 300 [Suspect]
     Indication: SCAN BRAIN
     Dosage: 75 ML, 1 DOSE, INTRAVENOUS
     Route: 042
     Dates: start: 20050404, end: 20050404

REACTIONS (7)
  - CHOKING SENSATION [None]
  - ERYTHEMA [None]
  - FEELING HOT [None]
  - HEART RATE INCREASED [None]
  - HYPERHIDROSIS [None]
  - NAUSEA [None]
  - URTICARIA [None]
